FAERS Safety Report 16933626 (Version 1)
Quarter: 2019Q4

REPORT INFORMATION
  Report Type: Spontaneous
  Country: US (occurrence: US)
  Receive Date: 20191018
  Receipt Date: 20191018
  Transmission Date: 20200122
  Serious: Yes (Other)
  Sender: FDA-Public Use
  Company Number: US-ASTRAZENECA-2019SF46692

PATIENT
  Age: 81 Year
  Sex: Female
  Weight: 113.4 kg

DRUGS (4)
  1. BYDUREON BCISE [Suspect]
     Active Substance: EXENATIDE
     Indication: TYPE 2 DIABETES MELLITUS
     Route: 058
  2. ELIQUIS [Concomitant]
     Active Substance: APIXABAN
  3. BYDUREON [Suspect]
     Active Substance: EXENATIDE
     Indication: TYPE 2 DIABETES MELLITUS
     Route: 058
  4. BYETTA [Suspect]
     Active Substance: EXENATIDE
     Indication: TYPE 2 DIABETES MELLITUS
     Route: 058

REACTIONS (12)
  - Injection site mass [Not Recovered/Not Resolved]
  - Precancerous skin lesion [Recovered/Resolved]
  - Cataract [Recovering/Resolving]
  - Weight increased [Not Recovered/Not Resolved]
  - Device issue [Unknown]
  - Pulmonary thrombosis [Recovered/Resolved]
  - Parathyroid disorder [Recovered/Resolved]
  - Injection site pain [Recovered/Resolved]
  - Blood calcium increased [Recovered/Resolved]
  - Blood pressure decreased [Recovered/Resolved]
  - Cellulitis [Recovering/Resolving]
  - Incorrect dose administered [Not Recovered/Not Resolved]

NARRATIVE: CASE EVENT DATE: 2019
